FAERS Safety Report 16954223 (Version 1)
Quarter: 2019Q4

REPORT INFORMATION
  Report Type: Spontaneous
  Country: US (occurrence: US)
  Receive Date: 20191023
  Receipt Date: 20191023
  Transmission Date: 20200122
  Serious: No
  Sender: FDA-Public Use
  Company Number: US-ABBVIE-18S-163-2603212-00

PATIENT
  Age: 35 Year
  Sex: Female
  Weight: 81.72 kg

DRUGS (3)
  1. PRILOSEC [Concomitant]
     Active Substance: OMEPRAZOLE MAGNESIUM
     Indication: GASTRIC ULCER
     Route: 065
  2. LUPRON DEPOT [Suspect]
     Active Substance: LEUPROLIDE ACETATE
     Indication: ENDOMETRIOSIS
     Route: 050
     Dates: start: 201809
  3. SUCRALFATE. [Concomitant]
     Active Substance: SUCRALFATE
     Indication: GASTRIC ULCER
     Route: 065

REACTIONS (7)
  - Disturbance in social behaviour [Recovering/Resolving]
  - Hyporesponsive to stimuli [Recovering/Resolving]
  - Mood swings [Recovering/Resolving]
  - Insomnia [Recovering/Resolving]
  - Slow response to stimuli [Recovering/Resolving]
  - Abdominal pain upper [Recovering/Resolving]
  - Moaning [Recovering/Resolving]

NARRATIVE: CASE EVENT DATE: 201809
